FAERS Safety Report 4517964-8 (Version None)
Quarter: 2004Q4

REPORT INFORMATION
  Report Type: 
  Country: None (occurrence: None)
  Receive Date: 20041130
  Receipt Date: 20041116
  Transmission Date: 20050328
  Serious: Yes (Death)
  Sender: FDA-Public Use
  Company Number: STA-AE-04-MTX-573

PATIENT
  Sex: Male

DRUGS (1)
  1. RHEUMATREX [Suspect]
     Indication: RHEUMATOID ARTHRITIS
     Dosage: ORAL
     Route: 048

REACTIONS (1)
  - INTERSTITIAL LUNG DISEASE [None]
